FAERS Safety Report 5404629-3 (Version None)
Quarter: 2007Q3

REPORT INFORMATION
  Report Type: 
  Country: None (occurrence: None)
  Receive Date: 20070802
  Receipt Date: 20070523
  Transmission Date: 20080115
  Serious: Yes (Life-Threatening, Other)
  Sender: FDA-Public Use
  Company Number: ES-GENENTECH-232998

PATIENT
  Sex: Female
  Weight: 82.9 kg

DRUGS (5)
  1. HERCEPTIN [Suspect]
     Indication: BREAST CANCER
     Dosage: 328 G, UNK
     Route: 042
     Dates: start: 20060418, end: 20061003
  2. HERCEPTIN [Interacting]
     Dosage: 164 G, 1/WEEK
     Route: 042
     Dates: start: 20060418, end: 20060620
  3. HERCEPTIN [Interacting]
     Dosage: 490 G, 1/WEEK
     Route: 042
     Dates: start: 20061001, end: 20061001
  4. DOCETAXEL [Interacting]
     Indication: BREAST CANCER
     Route: 042
     Dates: start: 20060418, end: 20070620
  5. LETROZOLE [Interacting]
     Indication: BREAST CANCER
     Dates: start: 20061001

REACTIONS (1)
  - BRADYCARDIA [None]
